FAERS Safety Report 6140124-4 (Version None)
Quarter: 2009Q2

REPORT INFORMATION
  Report Type: 
  Country: None (occurrence: None)
  Receive Date: 20090401
  Receipt Date: 20090327
  Transmission Date: 20091009
  Serious: Yes (Other)
  Sender: FDA-Public Use
  Company Number: US-ASTRAZENECA-2006UW11256

PATIENT
  Age: 35 Year
  Sex: Male
  Weight: 117 kg

DRUGS (8)
  1. SEROQUEL [Suspect]
     Indication: DEPRESSION
     Dosage: 600 MG, 900 MG
     Route: 048
     Dates: start: 19980601, end: 20070501
  2. SEROQUEL [Suspect]
     Indication: ANXIETY
     Dosage: 600 MG, 900 MG
     Route: 048
     Dates: start: 19980601, end: 20070501
  3. SEROQUEL [Suspect]
     Indication: BIPOLAR DISORDER
     Dosage: 600 MG, 900 MG
     Route: 048
     Dates: start: 19980601, end: 20070501
  4. SEROQUEL [Suspect]
     Indication: SCHIZOPHRENIA
     Dosage: 600 MG, 900 MG
     Route: 048
     Dates: start: 19980601, end: 20070501
  5. ZYPREXA [Concomitant]
     Dates: start: 19990101
  6. ABILIFY [Concomitant]
     Dates: start: 20050101
  7. GEODON [Concomitant]
     Dates: start: 19980101
  8. RISPERDAL [Concomitant]
     Dates: start: 19980101

REACTIONS (4)
  - CARDIAC DISORDER [None]
  - DIABETES MELLITUS [None]
  - POLYP [None]
  - RENAL DISORDER [None]
